FAERS Safety Report 7587166-X (Version None)
Quarter: 2011Q3

REPORT INFORMATION
  Report Type: 
  Country: None (occurrence: None)
  Receive Date: 20110701
  Receipt Date: 20110617
  Transmission Date: 20111222
  Serious: Yes (Other)
  Sender: FDA-Public Use
  Company Number: GB-WATSON-2011-09680

PATIENT
  Sex: Female
  Weight: 275 kg

DRUGS (6)
  1. SEROQUEL [Suspect]
     Indication: PRODUCT USED FOR UNKNOWN INDICATION
     Dosage: 450 MG, DAILY
     Route: 048
  2. SEROQUEL [Suspect]
     Route: 048
  3. ESCITALOPRAM [Concomitant]
     Indication: DEPRESSION
     Dosage: 10 MG, DAILY
     Route: 048
  4. VALPROATE SODIUM [Concomitant]
     Indication: AFFECTIVE DISORDER
     Dosage: 800 MG, DAILY
     Route: 048
  5. ESCITALOPRAM [Concomitant]
     Indication: ANXIETY
     Dosage: 10 MG, DAILY
     Route: 048
  6. RAMIPRIL [Suspect]
     Indication: RENAL VESSEL DISORDER
     Route: 048

REACTIONS (6)
  - ORTHOSTATIC HYPOTENSION [None]
  - DIVERTICULITIS [None]
  - DIZZINESS [None]
  - DRUG INTOLERANCE [None]
  - ANXIETY [None]
  - DIARRHOEA [None]
